FAERS Safety Report 8201662-3 (Version None)
Quarter: 2012Q1

REPORT INFORMATION
  Report Type: 
  Country: None (occurrence: None)
  Receive Date: 20120312
  Receipt Date: 20120306
  Transmission Date: 20120608
  Serious: Yes (Other)
  Sender: FDA-Public Use
  Company Number: US-BAYER-201023178NA

PATIENT
  Age: 26 Year
  Sex: Female
  Weight: 73.923 kg

DRUGS (1)
  1. MIRENA [Suspect]
     Indication: CONTRACEPTION
     Dosage: 20 ?G/D, CONT
     Route: 015
     Dates: start: 20080701, end: 20100501

REACTIONS (4)
  - NAUSEA [None]
  - CAESAREAN SECTION [None]
  - BREAST TENDERNESS [None]
  - PREGNANCY WITH CONTRACEPTIVE DEVICE [None]
